FAERS Safety Report 10734600 (Version 4)
Quarter: 2019Q1

REPORT INFORMATION
  Report Type: Spontaneous
  Country: US (occurrence: US)
  Receive Date: 20150123
  Receipt Date: 20190301
  Transmission Date: 20190417
  Serious: Yes (Hospitalization, Other)
  Sender: FDA-Public Use
  Company Number: US-PFIZER INC-2015027462

PATIENT
  Age: 37 Year
  Sex: Female

DRUGS (1)
  1. NEURONTIN [Suspect]
     Active Substance: GABAPENTIN
     Indication: NEURALGIA
     Dosage: UNK
     Dates: start: 1993

REACTIONS (8)
  - Dizziness [Recovered/Resolved]
  - Product use in unapproved indication [Unknown]
  - Joint dislocation [Unknown]
  - Drug hypersensitivity [Recovered/Resolved]
  - Memory impairment [Recovered/Resolved]
  - Nervousness [Recovered/Resolved]
  - Dyskinesia [Recovered/Resolved]
  - Fall [Unknown]

NARRATIVE: CASE EVENT DATE: 1993
